FAERS Safety Report 24259102 (Version 1)
Quarter: 2024Q3

REPORT INFORMATION
  Report Type: Spontaneous
  Country: US (occurrence: None)
  Receive Date: 20240827
  Receipt Date: 20240827
  Transmission Date: 20241017
  Serious: Yes (unspecified)
  Sender: Public
  Company Number: None

PATIENT
  Age: 73 Year
  Sex: Female

DRUGS (2)
  1. TERIPARATIDE [Suspect]
     Active Substance: TERIPARATIDE
     Indication: Senile osteoporosis
     Dosage: FREQUENCY : DAILY;?
  2. ELIQUIS [Concomitant]

REACTIONS (9)
  - Thrombosis [None]
  - Dizziness [None]
  - Constipation [None]
  - Dry mouth [None]
  - Headache [None]
  - Vomiting [None]
  - Pneumonia [None]
  - Bronchitis [None]
  - Therapy interrupted [None]
